FAERS Safety Report 5393070-8 (Version None)
Quarter: 2007Q3

REPORT INFORMATION
  Report Type: 
  Country: None (occurrence: None)
  Receive Date: 20070719
  Receipt Date: 20070705
  Transmission Date: 20080115
  Serious: Yes (Other)
  Sender: FDA-Public Use
  Company Number: 02100-JPN-07-0337

PATIENT
  Age: 73 Year
  Sex: Female

DRUGS (3)
  1. CILOSTAZOL [Suspect]
     Indication: CEREBRAL INFARCTION
     Dosage: 100 MG, ORAL
     Route: 048
     Dates: start: 20070417, end: 20070704
  2. AMLODIPINE BESYLATE [Concomitant]
  3. CANDESARTAN CILEXETIL [Concomitant]

REACTIONS (4)
  - CEREBRAL INFARCTION [None]
  - DISEASE RECURRENCE [None]
  - VITREOUS FLOATERS [None]
  - VITREOUS HAEMORRHAGE [None]
